FAERS Safety Report 4565545-2 (Version None)
Quarter: 2005Q1

REPORT INFORMATION
  Report Type: 
  Country: None (occurrence: None)
  Receive Date: 20050126
  Receipt Date: 20050110
  Transmission Date: 20050727
  Serious: No
  Sender: FDA-Public Use
  Company Number: USA050187623

PATIENT
  Age: 31 Year
  Sex: Male
  Weight: 132 kg

DRUGS (9)
  1. STRATTERA [Suspect]
     Indication: ATTENTION DEFICIT/HYPERACTIVITY DISORDER
     Dosage: 80 MG DAY
     Dates: start: 20030101, end: 20050107
  2. ALBUTEROL [Concomitant]
  3. ABILIFY [Concomitant]
  4. PREVACID [Concomitant]
  5. ATIVAN [Concomitant]
  6. MINOXIDIL [Concomitant]
  7. CARDIZEM LA (DILTIAZEM) [Concomitant]
  8. CLONIDINE [Concomitant]
  9. ADDERALL 10 [Concomitant]

REACTIONS (9)
  - ABDOMINAL PAIN [None]
  - ANXIETY [None]
  - BONE DISORDER [None]
  - CHROMATURIA [None]
  - COUGH [None]
  - FORMICATION [None]
  - INFLUENZA LIKE ILLNESS [None]
  - RESTLESSNESS [None]
  - SPEECH DISORDER [None]
